FAERS Safety Report 19587813 (Version 1)
Quarter: 2021Q3

REPORT INFORMATION
  Report Type: Spontaneous
  Country: US (occurrence: US)
  Receive Date: 20210721
  Receipt Date: 20210721
  Transmission Date: 20211014
  Serious: Yes (Other)
  Sender: FDA-Public Use
  Company Number: US-STRIDES ARCOLAB LIMITED-2021SP025183

PATIENT
  Age: 34 Year
  Sex: Female

DRUGS (2)
  1. DHEA [Suspect]
     Active Substance: PRASTERONE
     Indication: PRIMARY ADRENAL INSUFFICIENCY
     Dosage: UNK
     Route: 065
  2. HYDROCORTISONE. [Suspect]
     Active Substance: HYDROCORTISONE
     Indication: PRIMARY ADRENAL INSUFFICIENCY
     Dosage: UNK
     Route: 065

REACTIONS (1)
  - Eosinophilic oesophagitis [Recovered/Resolved]
